FAERS Safety Report 20653362 (Version 1)
Quarter: 2022Q1

REPORT INFORMATION
  Report Type: Spontaneous
  Country: US (occurrence: US)
  Receive Date: 20220330
  Receipt Date: 20220330
  Transmission Date: 20220423
  Serious: No
  Sender: FDA-Public Use
  Company Number: US-BIOGEN-2022BI01109502

PATIENT
  Age: 43 Year
  Sex: Female

DRUGS (1)
  1. VUMERITY [Suspect]
     Active Substance: DIROXIMEL FUMARATE
     Indication: Multiple sclerosis
     Route: 065

REACTIONS (11)
  - Heart rate increased [Unknown]
  - Chest pain [Unknown]
  - Vein disorder [Unknown]
  - Dyspnoea [Unknown]
  - Cough [Unknown]
  - Confusional state [Unknown]
  - Altered visual depth perception [Unknown]
  - Gait disturbance [Unknown]
  - Cognitive disorder [Unknown]
  - Feeling abnormal [Unknown]
  - Nausea [Unknown]

NARRATIVE: CASE EVENT DATE: 20220314
